FAERS Safety Report 25508864 (Version 1)
Quarter: 2025Q3

REPORT INFORMATION
  Report Type: Spontaneous
  Country: JP (occurrence: JP)
  Receive Date: 20250703
  Receipt Date: 20250703
  Transmission Date: 20251021
  Serious: Yes (Other)
  Sender: ROCHE
  Company Number: JP-CHUGAI-2025020658

PATIENT
  Age: 2 Decade
  Sex: Female

DRUGS (7)
  1. CELLCEPT [Suspect]
     Active Substance: MYCOPHENOLATE MOFETIL
     Indication: Autoimmune hepatitis
     Dosage: 1000 MG/DAY
     Route: 050
  2. PREDNISOLONE [Suspect]
     Active Substance: PREDNISOLONE
     Indication: Autoimmune hepatitis
     Dosage: 25 MG (0.5 MG/KG/DAY)
     Route: 050
  3. PREDNISOLONE [Suspect]
     Active Substance: PREDNISOLONE
     Route: 050
  4. PREDNISOLONE [Suspect]
     Active Substance: PREDNISOLONE
     Route: 050
  5. PREDNISOLONE [Suspect]
     Active Substance: PREDNISOLONE
     Route: 050
  6. PREDNISOLONE [Suspect]
     Active Substance: PREDNISOLONE
     Route: 050
  7. EVEROLIMUS [Concomitant]
     Active Substance: EVEROLIMUS

REACTIONS (2)
  - Off label use [Unknown]
  - Angiosarcoma [Unknown]
